FAERS Safety Report 7832846-1 (Version None)
Quarter: 2011Q4

REPORT INFORMATION
  Report Type: 
  Country: None (occurrence: None)
  Receive Date: 20111024
  Receipt Date: 20111014
  Transmission Date: 20120403
  Serious: No
  Sender: FDA-Public Use
  Company Number: US-BIOGENIDEC-2011BI039365

PATIENT
  Sex: Female

DRUGS (1)
  1. AVONEX [Suspect]
     Indication: MULTIPLE SCLEROSIS
     Route: 030
     Dates: start: 20020510

REACTIONS (7)
  - INFLUENZA LIKE ILLNESS [None]
  - BALANCE DISORDER [None]
  - AMNESIA [None]
  - NAUSEA [None]
  - NECK PAIN [None]
  - MUSCULOSKELETAL STIFFNESS [None]
  - CONFUSIONAL STATE [None]
